FAERS Safety Report 4940110-3 (Version None)
Quarter: 2006Q1

REPORT INFORMATION
  Report Type: 
  Country: None (occurrence: None)
  Receive Date: 20060310
  Receipt Date: 20060120
  Transmission Date: 20060701
  Serious: Yes (Other)
  Sender: FDA-Public Use
  Company Number: US-ROCHE-432969

PATIENT
  Age: 52 Year
  Sex: Male
  Weight: 86.9 kg

DRUGS (13)
  1. CELLCEPT [Suspect]
     Route: 048
     Dates: start: 20041115
  2. CYCLOSPORINE [Concomitant]
     Route: 048
     Dates: start: 20050117, end: 20050117
  3. PREDNISONE [Concomitant]
     Route: 048
  4. NORVASC [Concomitant]
     Indication: HYPERTENSION
     Route: 048
  5. POTASSIUM PHOSPHATES [Concomitant]
     Dosage: INDICATION REPORTED AS: REPLACEMENT. DOSAGE REGIMEN, ON EPACKET EVERY DAY.
     Route: 048
  6. LASIX [Concomitant]
     Dosage: 40MG AM, 20MG PM.
     Route: 048
  7. LIPITOR [Concomitant]
     Indication: HYPERLIPIDAEMIA
     Route: 048
  8. AMARYL [Concomitant]
     Route: 048
  9. RAPAMUNE [Concomitant]
     Indication: TRANSPLANT
     Route: 048
     Dates: start: 20041115
  10. ASPIRIN [Concomitant]
     Dosage: INDICATION REPORTED AS CARDIAC PROTECTION.
     Route: 048
  11. LOPRESSOR [Concomitant]
     Dosage: INDICATION REPORTED AS: CARDIAC PROTECTION.
     Route: 048
     Dates: start: 20060117
  12. BACTRIM [Concomitant]
     Indication: PROPHYLAXIS
     Dosage: TAKEN ON MONDAY, WEDNESDAY AND FRIDAY.
     Dates: start: 20041115
  13. PEPCID [Concomitant]

REACTIONS (4)
  - CARDIAC ARREST [None]
  - CARDIOMYOPATHY [None]
  - EJECTION FRACTION DECREASED [None]
  - VENTRICULAR HYPOKINESIA [None]
